FAERS Safety Report 6823746-4 (Version None)
Quarter: 2010Q3

REPORT INFORMATION
  Report Type: 
  Country: None (occurrence: None)
  Receive Date: 20100708
  Receipt Date: 20060905
  Transmission Date: 20110219
  Serious: No
  Sender: FDA-Public Use
  Company Number: US-PFIZER INC-2006109496

PATIENT
  Sex: Female
  Weight: 108.86 kg

DRUGS (6)
  1. CHANTIX [Suspect]
     Indication: EX-TOBACCO USER
     Route: 048
     Dates: start: 20060801, end: 20060801
  2. DIOVAN [Concomitant]
  3. CARDIZEM [Concomitant]
  4. LASIX [Concomitant]
     Indication: FLUID RETENTION
  5. ZOLOFT [Concomitant]
  6. ATIVAN [Concomitant]

REACTIONS (1)
  - DRUG INEFFECTIVE [None]
